FAERS Safety Report 9333877 (Version 2)
Quarter: 2013Q2

REPORT INFORMATION
  Report Type: Spontaneous
  Country: FR (occurrence: None)
  Receive Date: 20130604
  Receipt Date: 20130617
  Transmission Date: 20140414
  Serious: Yes (Hospitalization)
  Sender: FDA-Public Use
  Company Number: KAD201305-000657

PATIENT
  Age: 62 Year
  Sex: Female

DRUGS (4)
  1. RIBAVIRIN [Suspect]
     Indication: HEPATITIS C
     Dosage: STOPPED
  2. PEGINTERFERON ALFA-2A [Suspect]
     Indication: HEPATITIS C
     Dosage: 180 MCG/WEEK, SUBCUTANEOUS
     Route: 058
  3. AMANTADINE [Suspect]
     Indication: HEPATITIS C
     Dosage: STOPPED?
  4. SOLUMEDROL [Suspect]
     Dosage: STOPPED
     Route: 040

REACTIONS (6)
  - Sarcoidosis [None]
  - Guillain-Barre syndrome [None]
  - Confusional state [None]
  - Hallucination, visual [None]
  - Infection [None]
  - Lung disorder [None]
